FAERS Safety Report 9453598 (Version 1)
Quarter: 2013Q3

REPORT INFORMATION
  Report Type: Spontaneous
  Country: US (occurrence: None)
  Receive Date: 20130809
  Receipt Date: 20130809
  Transmission Date: 20140515
  Serious: Yes (Disabling)
  Sender: FDA-Public Use
  Company Number: None

PATIENT
  Age: 40 Year
  Sex: Female
  Weight: 63.5 kg

DRUGS (1)
  1. ZOLPIDEM [Suspect]
     Indication: INSOMNIA
     Dosage: 30  ONCE DAILY  TAKEN BY MOUTH?07/17/2013 - 08/15/2013
     Route: 048
     Dates: start: 20130717, end: 20130815

REACTIONS (1)
  - Drug ineffective [None]
